FAERS Safety Report 22124794 (Version 1)
Quarter: 2023Q1

REPORT INFORMATION
  Report Type: Report from Study
  Country: US (occurrence: None)
  Receive Date: 20230322
  Receipt Date: 20230322
  Transmission Date: 20230418
  Serious: Yes (Death)
  Sender: FDA-Public Use
  Company Number: US-ROCHE-3314703

PATIENT

DRUGS (2)
  1. POLATUZUMAB VEDOTIN [Suspect]
     Active Substance: POLATUZUMAB VEDOTIN
     Indication: Diffuse large B-cell lymphoma
     Dosage: 08/OCT/2021 DATE OF PATIENT COMPLETING CYCLE 2 DAY15. DATE OF  PATIENT COMPLETED TX/LAST DOSE OF GNE
     Route: 042
     Dates: start: 20210903
  2. RITUXIMAB [Suspect]
     Active Substance: RITUXIMAB
     Indication: Diffuse large B-cell lymphoma
     Dosage: 08/OCT/2021 DATE OF PATIENT COMPLETING CYCLE 2 DAY15. DATE OF PATIENT COMPLETED TX/LAST DOSE OF GNE
     Route: 041
     Dates: start: 20210903

REACTIONS (1)
  - Death [Fatal]
